FAERS Safety Report 10659212 (Version 2)
Quarter: 2015Q1

REPORT INFORMATION
  Report Type: Report from Study
  Country: US (occurrence: US)
  Receive Date: 20141217
  Receipt Date: 20150128
  Transmission Date: 20150720
  Serious: Yes (Hospitalization, Other)
  Sender: FDA-Public Use
  Company Number: PHEH2014US024606

PATIENT
  Age: 74 Year
  Sex: Female

DRUGS (1)
  1. GLEEVEC [Suspect]
     Active Substance: IMATINIB MESYLATE
     Indication: PANCREATIC CARCINOMA
     Dosage: 400 MG, QD
     Route: 048

REACTIONS (5)
  - Syncope [Unknown]
  - Hypotension [Unknown]
  - Hip fracture [Unknown]
  - Pelvic fracture [Unknown]
  - Fall [Unknown]

NARRATIVE: CASE EVENT DATE: 201410
